FAERS Safety Report 4458459-X (Version None)
Quarter: 2004Q3

REPORT INFORMATION
  Report Type: 
  Country: None (occurrence: None)
  Receive Date: 20040922
  Receipt Date: 20040723
  Transmission Date: 20050211
  Serious: Yes (Hospitalization)
  Sender: FDA-Public Use
  Company Number: US-SHR-04-019568

PATIENT
  Age: 54 Year
  Sex: Male
  Weight: 88.4 kg

DRUGS (10)
  1. BETASERON [Suspect]
     Indication: MULTIPLE SCLEROSIS
     Dosage: 8 MIU, EVERY 2D, SUBCUTANEOUS
     Route: 058
     Dates: start: 20020124, end: 20030815
  2. COZAAR [Concomitant]
  3. ATENLOL [Concomitant]
  4. CELEBREX [Concomitant]
  5. AMANTADINE (AMANTADINE) [Concomitant]
  6. ALLEGRA [Concomitant]
  7. BUPROPION HCL [Concomitant]
  8. ORAMORPH - SLOW RELEASE (MORPHINE SULFATE) [Concomitant]
  9. CIMETIDINE [Concomitant]
  10. ANDROGEL IMPLANT [Concomitant]

REACTIONS (3)
  - INJECTION SITE DESQUAMATION [None]
  - INJECTION SITE INFECTION [None]
  - INJECTION SITE ULCER [None]
